FAERS Safety Report 9447376 (Version 1)
Quarter: 2013Q3

REPORT INFORMATION
  Report Type: Report from Study
  Country: IE (occurrence: IE)
  Receive Date: 20130808
  Receipt Date: 20130808
  Transmission Date: 20140515
  Serious: Yes (Other)
  Sender: FDA-Public Use
  Company Number: IE-ROCHE-1258483

PATIENT
  Sex: 0

DRUGS (4)
  1. TRASTUZUMAB [Suspect]
     Indication: BREAST CANCER METASTATIC
     Dosage: LOADING DOSE
     Route: 042
  2. TRASTUZUMAB [Suspect]
     Dosage: FIXED DOSE
     Route: 042
  3. DOCETAXEL [Suspect]
     Indication: BREAST CANCER METASTATIC
     Dosage: ESCALATING DOSES: 60, 75, AND 100 MG/M2
     Route: 065
  4. LAPATINIB [Suspect]
     Indication: BREAST CANCER METASTATIC
     Dosage: ESCALATING DOSES: 500, 750, 1000, 1250, AND 1500 MG
     Route: 048

REACTIONS (11)
  - Nausea [Unknown]
  - Rash [Unknown]
  - Vomiting [Unknown]
  - Neuropathy peripheral [Unknown]
  - Asthenia [Unknown]
  - Leukopenia [Unknown]
  - Neutropenic sepsis [Unknown]
  - Diarrhoea [Unknown]
  - Fatigue [Unknown]
  - Neutropenia [Unknown]
  - Nail disorder [Unknown]
